FAERS Safety Report 6782669-X (Version None)
Quarter: 2010Q2

REPORT INFORMATION
  Report Type: 
  Country: None (occurrence: None)
  Receive Date: 20100621
  Receipt Date: 20100427
  Transmission Date: 20101027
  Serious: No
  Sender: FDA-Public Use
  Company Number: AT-ELI_LILLY_AND_COMPANY-AT201004008201

PATIENT

DRUGS (10)
  1. OLANZAPINE [Suspect]
     Dosage: UNK, UNKNOWN
     Route: 065
  2. PIPERIDINE [Concomitant]
     Dosage: UNK, UNKNOWN
     Route: 065
  3. VALPROAT [Concomitant]
     Dosage: UNK, UNKNOWN
     Route: 065
  4. VENLAFAXINE [Concomitant]
     Dosage: UNK, UNKNOWN
     Route: 065
  5. ZOLPIDEM TARTRATE [Concomitant]
     Dosage: UNK, UNKNOWN
     Route: 065
  6. OMEPRAZOLE [Concomitant]
     Dosage: UNK, UNKNOWN
     Route: 065
  7. OXAZEPAM [Concomitant]
     Dosage: UNK, UNKNOWN
     Route: 065
  8. VALIUM [Concomitant]
     Dosage: UNK, UNKNOWN
     Route: 065
  9. LORAZEPAM [Concomitant]
     Dosage: UNK, UNKNOWN
     Route: 065
  10. DOXAZOSIN MESYLATE [Concomitant]
     Dosage: UNK, UNKNOWN
     Route: 065

REACTIONS (1)
  - NEUTROPENIA [None]
